FAERS Safety Report 7266849-5 (Version None)
Quarter: 2011Q1

REPORT INFORMATION
  Report Type: 
  Country: None (occurrence: None)
  Receive Date: 20110121
  Receipt Date: 20110107
  Transmission Date: 20110831
  Serious: Yes (Hospitalization, Other)
  Sender: FDA-Public Use
  Company Number: UTC-004110

PATIENT
  Age: 62 Year
  Sex: Female

DRUGS (3)
  1. TYVASO [Suspect]
     Dosage: INHALATION
     Route: 055
     Dates: start: 20091111
  2. REVATIO [Concomitant]
  3. TRACLEER [Concomitant]

REACTIONS (4)
  - COUGH [None]
  - PNEUMONIA [None]
  - CHEST DISCOMFORT [None]
  - ASTHMA [None]
